FAERS Safety Report 26187148 (Version 1)
Quarter: 2025Q4

REPORT INFORMATION
  Report Type: Spontaneous
  Country: US (occurrence: None)
  Receive Date: 20251222
  Receipt Date: 20251222
  Transmission Date: 20260118
  Serious: No
  Sender: Harrow Health
  Company Number: US-HARROW-HAR-2025-US-00893

PATIENT
  Age: 73 Year

DRUGS (5)
  1. VEVYE [Suspect]
     Active Substance: CYCLOSPORINE
     Route: 047
     Dates: start: 20250901
  2. GABAPENTIN [Concomitant]
     Active Substance: GABAPENTIN
  3. METOPROLOL [Concomitant]
     Active Substance: METOPROLOL
  4. SPIRONOLACTONE [Concomitant]
     Active Substance: SPIRONOLACTONE
  5. MEDICAL FOOD [Concomitant]
     Active Substance: MEDICAL FOOD

REACTIONS (2)
  - Eye irritation [Not Recovered/Not Resolved]
  - Ocular hyperaemia [Not Recovered/Not Resolved]

NARRATIVE: CASE EVENT DATE: 20250901
